FAERS Safety Report 13736887 (Version 1)
Quarter: 2017Q3

REPORT INFORMATION
  Report Type: Spontaneous
  Country: US (occurrence: US)
  Receive Date: 20170707
  Receipt Date: 20170707
  Transmission Date: 20171127
  Serious: No
  Sender: FDA-Public Use
  Company Number: None

PATIENT
  Age: 54 Year
  Sex: Female

DRUGS (1)
  1. IBRANCE [Suspect]
     Active Substance: PALBOCICLIB
     Indication: BREAST CANCER FEMALE
     Dosage: 125MG ONCE DAILY FOR 21 DAYS, 7 DAYS OFF ORALLY
     Route: 048
     Dates: start: 20161213, end: 20170615

REACTIONS (2)
  - Gene mutation [None]
  - Drug ineffective [None]

NARRATIVE: CASE EVENT DATE: 20170615
